FAERS Safety Report 17101738 (Version 1)
Quarter: 2019Q4

REPORT INFORMATION
  Report Type: Spontaneous
  Country: JP (occurrence: JP)
  Receive Date: 20191202
  Receipt Date: 20191202
  Transmission Date: 20200122
  Serious: Yes (Hospitalization, Other)
  Sender: FDA-Public Use
  Company Number: JP-SHIRE-JP201941332

PATIENT

DRUGS (3)
  1. LIALDA [Suspect]
     Active Substance: MESALAMINE
     Dosage: UNK
     Route: 048
  2. MESALAZINE [Concomitant]
     Active Substance: MESALAMINE
     Indication: COLITIS ULCERATIVE
  3. LIALDA [Suspect]
     Active Substance: MESALAMINE
     Indication: COLITIS ULCERATIVE
     Dosage: UNK
     Route: 065

REACTIONS (5)
  - Sepsis [Recovering/Resolving]
  - Large intestine infection [Recovering/Resolving]
  - Nephropathy toxic [Recovering/Resolving]
  - Pulmonary congestion [Recovering/Resolving]
  - Pleural effusion [Recovering/Resolving]
